FAERS Safety Report 9454569 (Version 1)
Quarter: 2013Q3

REPORT INFORMATION
  Report Type: Spontaneous
  Country: JP (occurrence: JP)
  Receive Date: 20130812
  Receipt Date: 20130812
  Transmission Date: 20140515
  Serious: Yes (Death)
  Sender: FDA-Public Use
  Company Number: JP-GENZYME-THYM-1003980

PATIENT
  Sex: Male

DRUGS (3)
  1. THYMOGLOBULINE [Suspect]
     Indication: LIVER TRANSPLANT REJECTION
     Dosage: 2.5 MG/KG, QD
     Route: 065
     Dates: start: 20110905, end: 20110911
  2. TACROLIMUS [Concomitant]
     Indication: IMMUNOSUPPRESSION
     Dosage: UNK
     Route: 065
     Dates: start: 20001230, end: 20110914
  3. SOL-MELCORT [Concomitant]
     Indication: PRODUCT USED FOR UNKNOWN INDICATION
     Dosage: UNK
     Route: 065
     Dates: start: 20110827, end: 20110831

REACTIONS (1)
  - Haemorrhage [Fatal]
